FAERS Safety Report 8446967-6 (Version None)
Quarter: 2012Q2

REPORT INFORMATION
  Report Type: 
  Country: None (occurrence: None)
  Receive Date: 20120619
  Receipt Date: 20120611
  Transmission Date: 20120825
  Serious: Yes (Hospitalization, Other)
  Sender: FDA-Public Use
  Company Number: FR-VERTEX PHARMACEUTICALS INC.-AE-2011-000141

PATIENT
  Sex: Male
  Weight: 100 kg

DRUGS (13)
  1. METFORMIN HCL [Concomitant]
     Indication: DIABETES MELLITUS
     Dates: start: 20110201
  2. PEGASYS [Concomitant]
     Indication: HEPATITIS C
     Route: 058
     Dates: start: 20110520
  3. COPEGUS [Concomitant]
     Indication: HEPATITIS C
     Route: 048
     Dates: start: 20110320, end: 20110426
  4. CANDESARTAN CILEXETIL AND HYDROCHLOROTHIAZIDE [Concomitant]
     Indication: HYPERTENSION
     Dates: start: 20110201
  5. COPEGUS [Concomitant]
     Route: 048
     Dates: start: 20110427, end: 20110508
  6. RAMIPRIL [Concomitant]
     Indication: HYPERTENSION
     Dates: end: 20110408
  7. LEVOTHYROXINE SODIUM [Concomitant]
     Indication: HYPOTHYROIDISM
     Dates: start: 20110201
  8. INSULIN [Concomitant]
     Indication: DIABETES MELLITUS
     Dates: start: 20110201
  9. PROPRANOLOL [Concomitant]
     Indication: OESOPHAGEAL VARICES HAEMORRHAGE
     Dates: start: 20110201
  10. LANTUS [Concomitant]
     Indication: DIABETES MELLITUS
  11. VX-950 [Suspect]
     Indication: HEPATITIS C
     Route: 048
     Dates: start: 20110320, end: 20110616
  12. COPEGUS [Concomitant]
     Route: 048
     Dates: start: 20110509, end: 20110628
  13. COPEGUS [Concomitant]
     Dates: start: 20110629, end: 20110706

REACTIONS (4)
  - NEUTROPENIA [None]
  - BLOOD UREA INCREASED [None]
  - ANAEMIA [None]
  - BLOOD CREATININE INCREASED [None]
